FAERS Safety Report 7031124-0 (Version None)
Quarter: 2010Q4

REPORT INFORMATION
  Report Type: 
  Country: None (occurrence: None)
  Receive Date: 20101006
  Receipt Date: 20100928
  Transmission Date: 20110411
  Serious: Yes (Other)
  Sender: FDA-Public Use
  Company Number: US-ELI_LILLY_AND_COMPANY-US201008008843

PATIENT
  Age: 65 Year
  Sex: Male

DRUGS (3)
  1. CIALIS [Suspect]
     Indication: ERECTILE DYSFUNCTION
     Dosage: 20 MG, UNK
     Route: 048
  2. SIMVASTATIN [Concomitant]
     Indication: DYSLIPIDAEMIA
  3. AMBIEN CR [Concomitant]
     Indication: INSOMNIA

REACTIONS (2)
  - EYE DISORDER [None]
  - RETINAL VEIN OCCLUSION [None]
